FAERS Safety Report 23028685 (Version 2)
Quarter: 2023Q4

REPORT INFORMATION
  Report Type: Report from Study
  Country: PA (occurrence: PA)
  Receive Date: 20231004
  Receipt Date: 20231016
  Transmission Date: 20240110
  Serious: Yes (Other)
  Sender: FDA-Public Use
  Company Number: PA-SANDOZ-SDZ2023PA035961

PATIENT
  Sex: Female

DRUGS (5)
  1. KISQALI [Suspect]
     Active Substance: RIBOCICLIB
     Indication: Breast cancer metastatic
     Dosage: 600 MG, QD
     Route: 048
     Dates: start: 20190601
  2. KISQALI [Suspect]
     Active Substance: RIBOCICLIB
     Dosage: 200 MG, QD
     Route: 065
  3. ANASTROZOLE [Suspect]
     Active Substance: ANASTROZOLE
     Indication: Breast cancer
     Dosage: UNK
     Route: 065
  4. ANASTROZOLE [Suspect]
     Active Substance: ANASTROZOLE
     Indication: Liver disorder
  5. ANASTROZOLE [Suspect]
     Active Substance: ANASTROZOLE
     Indication: Arthropathy

REACTIONS (1)
  - Decreased immune responsiveness [Unknown]
